FAERS Safety Report 8001113-8 (Version None)
Quarter: 2011Q4

REPORT INFORMATION
  Report Type: 
  Country: None (occurrence: None)
  Receive Date: 20111222
  Receipt Date: 20111214
  Transmission Date: 20120403
  Serious: Yes (Other)
  Sender: FDA-Public Use
  Company Number: JP-PFIZER INC-2007055144

PATIENT
  Age: 12 Year
  Sex: Female

DRUGS (3)
  1. METHYLPREDNISOLONE [Suspect]
     Indication: DERMATOMYOSITIS
  2. METHOTREXATE SODIUM [Suspect]
  3. PREDNISOLONE [Suspect]
     Indication: DERMATOMYOSITIS

REACTIONS (2)
  - ENCEPHALOPATHY [None]
  - BLOOD PRESSURE INCREASED [None]
